FAERS Safety Report 4898399-5 (Version None)
Quarter: 2006Q1

REPORT INFORMATION
  Report Type: 
  Country: None (occurrence: None)
  Receive Date: 20060121
  Receipt Date: 20060121
  Transmission Date: 20060701
  Serious: Yes (Hospitalization)
  Sender: FDA-Public Use
  Company Number: None

PATIENT
  Age: 56 Year
  Sex: Female

DRUGS (1)
  1. DILANTIN [Suspect]
     Indication: CONVULSION

REACTIONS (2)
  - ANTICONVULSANT DRUG LEVEL INCREASED [None]
  - MENTAL STATUS CHANGES [None]
